FAERS Safety Report 5957687-1 (Version None)
Quarter: 2008Q4

REPORT INFORMATION
  Report Type: 
  Country: None (occurrence: None)
  Receive Date: 20081119
  Receipt Date: 20081112
  Transmission Date: 20090506
  Serious: Yes (Other)
  Sender: FDA-Public Use
  Company Number: US-JNJFOC-20081103235

PATIENT
  Age: 8 Month
  Sex: Male
  Weight: 9.98 kg

DRUGS (2)
  1. INFANTS MYLICON NON-STAINING FORMULA [Suspect]
     Indication: FLATULENCE
     Route: 048
  2. INFANTS MYLICON NON-STAINING FORMULA [Suspect]
     Indication: GASTROOESOPHAGEAL REFLUX DISEASE
     Dosage: UNKNOWN
     Route: 048

REACTIONS (3)
  - GASTROINTESTINAL DISORDER [None]
  - PRODUCT QUALITY ISSUE [None]
  - VOMITING [None]
